FAERS Safety Report 8567478-3 (Version None)
Quarter: 2012Q3

REPORT INFORMATION
  Report Type: 
  Country: None (occurrence: None)
  Receive Date: 20120803
  Receipt Date: 20111208
  Transmission Date: 20120928
  Serious: No
  Sender: FDA-Public Use
  Company Number: US-ABBOTT-11P-163-0881535-00

PATIENT
  Sex: Male

DRUGS (3)
  1. BLOOD PRESSURE MEDICATION [Concomitant]
     Indication: PRODUCT USED FOR UNKNOWN INDICATION
  2. NIASPAN [Suspect]
     Indication: BLOOD CHOLESTEROL INCREASED
     Dosage: AT BEDTIME
     Route: 048
     Dates: start: 20100601
  3. NIASPAN [Suspect]
     Indication: ISCHAEMIC HEART DISEASE PROPHYLAXIS

REACTIONS (1)
  - PRURITUS [None]
